FAERS Safety Report 11867879 (Version 1)
Quarter: 2015Q4

REPORT INFORMATION
  Report Type: Spontaneous
  Country: AU (occurrence: AU)
  Receive Date: 20151224
  Receipt Date: 20151224
  Transmission Date: 20160305
  Serious: Yes (Other)
  Sender: FDA-Public Use
  Company Number: AU-BRISTOL-MYERS SQUIBB COMPANY-BMS-2015-088623

PATIENT
  Age: 27 Year
  Sex: Female

DRUGS (4)
  1. FLUVOXAMINE [Concomitant]
     Active Substance: FLUVOXAMINE
     Indication: AGGRESSION
     Dosage: UNK
     Route: 065
     Dates: start: 200712
  2. DIABEX [Suspect]
     Active Substance: METFORMIN HYDROCHLORIDE
     Indication: POLYCYSTIC OVARIES
     Dosage: 500 MG, BID
     Route: 048
     Dates: start: 200712, end: 20080630
  3. LAMITRIN [Concomitant]
     Active Substance: LAMOTRIGINE
     Indication: PRODUCT USED FOR UNKNOWN INDICATION
     Dosage: UNK
     Route: 065
     Dates: start: 1996
  4. GARDASIL [Concomitant]
     Active Substance: HUMAN PAPILLOMAVIRUS QUADRIVALENT (TYPES 6, 11, 16, AND 18) VACCINE, RECOMBINANT
     Indication: PAPILLOMA VIRAL INFECTION
     Dosage: UNK
     Route: 065
     Dates: start: 200710

REACTIONS (6)
  - Weight decreased [Unknown]
  - Ocular hyperaemia [Unknown]
  - Off label use [Unknown]
  - Erythema [Unknown]
  - Circulatory collapse [Unknown]
  - Nystagmus [Unknown]

NARRATIVE: CASE EVENT DATE: 20080701
